FAERS Safety Report 16568624 (Version 3)
Quarter: 2019Q3

REPORT INFORMATION
  Report Type: Report from Study
  Country: None (occurrence: CO)
  Receive Date: 20190712
  Receipt Date: 20190913
  Transmission Date: 20191004
  Serious: Yes (Other)
  Sender: FDA-Public Use
  Company Number: CO-ABBVIE-19K-036-2851772-00

PATIENT
  Sex: Female
  Weight: 67 kg

DRUGS (4)
  1. HUMIRA [Suspect]
     Active Substance: ADALIMUMAB
     Route: 058
     Dates: start: 20190820
  2. HUMIRA [Suspect]
     Active Substance: ADALIMUMAB
     Indication: PSORIASIS
     Route: 058
     Dates: start: 20140613
  3. BETAMETHASONE. [Concomitant]
     Active Substance: BETAMETHASONE
     Indication: PSORIASIS
     Route: 061
  4. HUMIRA [Suspect]
     Active Substance: ADALIMUMAB
     Indication: PSORIASIS
     Route: 058
     Dates: end: 20190205

REACTIONS (15)
  - Choking [Not Recovered/Not Resolved]
  - Bronchitis [Recovering/Resolving]
  - Scratch [Unknown]
  - Blood triglycerides increased [Recovering/Resolving]
  - Drug ineffective [Unknown]
  - Sinusitis noninfective [Recovering/Resolving]
  - Post procedural complication [Recovering/Resolving]
  - Blood cholesterol increased [Recovering/Resolving]
  - Asphyxia [Recovering/Resolving]
  - Skin haemorrhage [Unknown]
  - Skin plaque [Unknown]
  - Arthritis [Not Recovered/Not Resolved]
  - Gait disturbance [Not Recovered/Not Resolved]
  - Alopecia [Unknown]
  - Psoriasis [Not Recovered/Not Resolved]

NARRATIVE: CASE EVENT DATE: 2019
